FAERS Safety Report 9725324 (Version 1)
Quarter: 2013Q4

REPORT INFORMATION
  Report Type: Spontaneous
  Country: US (occurrence: None)
  Receive Date: 20131129
  Receipt Date: 20131129
  Transmission Date: 20140711
  Serious: Yes (Other)
  Sender: FDA-Public Use
  Company Number: 2013-US-003651

PATIENT
  Age: 55 Year
  Sex: Female

DRUGS (1)
  1. XYREM (SODIUM OXYBATE) ORAL SOLUTION, 500MG/ML [Suspect]
     Indication: NARCOLEPSY
     Route: 048
     Dates: start: 200612

REACTIONS (5)
  - Sleep apnoea syndrome [None]
  - Throat irritation [None]
  - Sinus disorder [None]
  - Insomnia [None]
  - Intentional drug misuse [None]
